FAERS Safety Report 14952144 (Version 3)
Quarter: 2019Q1

REPORT INFORMATION
  Report Type: Report from Study
  Country: GB (occurrence: GB)
  Receive Date: 20180530
  Receipt Date: 20190110
  Transmission Date: 20190417
  Serious: Yes (Death, Hospitalization)
  Sender: FDA-Public Use
  Company Number: GB-PFIZER INC-2018212467

PATIENT
  Age: 43 Year
  Sex: Female
  Weight: 80.6 kg

DRUGS (32)
  1. DOXYCYCLINE. [Concomitant]
     Active Substance: DOXYCYCLINE
     Dosage: UNK
     Route: 048
     Dates: start: 20150603, end: 20150608
  2. LACTULOSE. [Concomitant]
     Active Substance: LACTULOSE
     Dosage: 15 ML, UNK
     Route: 048
     Dates: start: 20150127, end: 20150801
  3. DALTEPARIN [Concomitant]
     Active Substance: DALTEPARIN
     Dosage: 15000 IU, 1X/DAY
     Route: 058
     Dates: start: 201504
  4. ONDANSETRON [Concomitant]
     Active Substance: ONDANSETRON
     Dosage: 16 MBQ, 1X/DAY
     Route: 048
     Dates: start: 20150226, end: 20150424
  5. PERTUZUMAB. [Suspect]
     Active Substance: PERTUZUMAB
     Indication: BREAST CANCER METASTATIC
     Dosage: 840 MG, EVERY 3 WEEKS
     Route: 042
     Dates: start: 20150226
  6. PERTUZUMAB. [Suspect]
     Active Substance: PERTUZUMAB
     Dosage: 420 MG, WEEKLY
     Route: 042
     Dates: end: 20150508
  7. METOCLOPRAMIDE. [Concomitant]
     Active Substance: METOCLOPRAMIDE
     Dosage: 10 MG, 1X/DAY
     Route: 048
     Dates: start: 20150226, end: 201508
  8. SALBUTAMOL [Concomitant]
     Active Substance: ALBUTEROL
     Indication: MALAISE
     Dosage: 2.5 MG, UNK (NEBULIZED)
     Route: 065
     Dates: start: 201504
  9. ZOPICLONE [Concomitant]
     Active Substance: ZOPICLONE
     Dosage: 3.75 MG, UNK
     Route: 048
     Dates: start: 201502
  10. DEXAMETHASONE SODIUM PHOSPHATE. [Concomitant]
     Active Substance: DEXAMETHASONE SODIUM PHOSPHATE
     Dosage: UNK
     Route: 042
     Dates: start: 20150823, end: 20150823
  11. DEXAMETHASONE. [Concomitant]
     Active Substance: DEXAMETHASONE
     Indication: CONFUSIONAL STATE
     Dosage: 1 DF, 1X/DAY
     Route: 048
     Dates: start: 201502, end: 20150823
  12. SALBUTAMOL [Concomitant]
     Active Substance: ALBUTEROL
     Dosage: UNK (INHALATION)
     Route: 055
     Dates: start: 20150602
  13. OXYGEN. [Concomitant]
     Active Substance: OXYGEN
     Dosage: UNK
     Route: 065
     Dates: start: 20150410
  14. PARACETAMOL [Concomitant]
     Active Substance: ACETAMINOPHEN
     Indication: HEADACHE
     Dosage: 2000 MG, UNK
     Route: 048
     Dates: start: 201502
  15. PACLITAXEL. [Suspect]
     Active Substance: PACLITAXEL
     Indication: BREAST CANCER METASTATIC
     Dosage: 192.5 MG, EVERY 3 WEEKS (MOST RECENT DOSE RECEIVED ON 22/05/2015)
     Route: 041
     Dates: start: 20150226, end: 20150522
  16. PARACETAMOL [Concomitant]
     Active Substance: ACETAMINOPHEN
     Dosage: 4 G, 1X/DAY
     Route: 048
     Dates: start: 20150823, end: 20150825
  17. BISOPROLOL [Concomitant]
     Active Substance: BISOPROLOL
     Dosage: UNK
     Route: 065
     Dates: start: 201504, end: 20150810
  18. ADENOSINE. [Concomitant]
     Active Substance: ADENOSINE
     Dosage: UNK
     Route: 042
     Dates: start: 20150808, end: 20150808
  19. ONDANSETRON [Concomitant]
     Active Substance: ONDANSETRON
     Dosage: 48 MG, UNK
     Route: 065
     Dates: start: 201502
  20. HYDROCORTISONE. [Concomitant]
     Active Substance: HYDROCORTISONE
     Dosage: 100 MG, UNK (ONCE)
     Route: 042
     Dates: start: 20150226, end: 20150806
  21. TRASTUZUMAB EMTANSINE [Suspect]
     Active Substance: ADO-TRASTUZUMAB EMTANSINE
     Indication: BREAST CANCER METASTATIC
     Dosage: 290 MG, EVERY 3 WEEKS
     Route: 042
     Dates: start: 20150604, end: 20150806
  22. BISOPROLOL [Concomitant]
     Active Substance: BISOPROLOL
     Dosage: 5 MG, 1X/DAY
     Route: 048
     Dates: start: 20150811, end: 20150812
  23. OXYGEN. [Concomitant]
     Active Substance: OXYGEN
     Dosage: 8 L, UNK (INHALANT)
     Route: 055
     Dates: start: 201502
  24. TRAMADOL. [Concomitant]
     Active Substance: TRAMADOL
     Dosage: 50 MG, UNK
     Route: 048
     Dates: start: 201502
  25. MORPHINE SULFATE. [Concomitant]
     Active Substance: MORPHINE SULFATE
     Dosage: 5 ML, UNK
     Route: 048
     Dates: start: 201502
  26. CASSIA SENNA [Concomitant]
     Active Substance: HERBALS\SENNOSIDES
     Dosage: 7.5 MG, UNK
     Route: 048
     Dates: start: 201504
  27. GRANISETRON [Concomitant]
     Active Substance: GRANISETRON
     Dosage: 1 MG, UNK (ONCE)
     Route: 042
     Dates: start: 20150226, end: 20150806
  28. TRASTUZUMAB. [Suspect]
     Active Substance: TRASTUZUMAB
     Indication: BREAST CANCER METASTATIC
     Dosage: 600 MG, EVERY 3 WEEKS
     Route: 058
     Dates: start: 20150226, end: 20150508
  29. BISOPROLOL [Concomitant]
     Active Substance: BISOPROLOL
     Dosage: 5 MG, 1X/DAY
     Route: 048
     Dates: start: 20150815
  30. CHLORPHENAMINE [Concomitant]
     Active Substance: CHLORPHENIRAMINE MALEATE
     Dosage: 10 MG, UNK (ONCE)
     Route: 042
     Dates: start: 20150226, end: 20150806
  31. LORAZEPAM. [Concomitant]
     Active Substance: LORAZEPAM
     Dosage: 1 MG, UNK
     Route: 048
     Dates: start: 201502
  32. DOXYCYCLINE. [Concomitant]
     Active Substance: DOXYCYCLINE
     Indication: MALAISE
     Dosage: 1 DF, 1X/DAY
     Route: 065
     Dates: start: 201505

REACTIONS (18)
  - Dyspnoea [Not Recovered/Not Resolved]
  - Pneumonia [Not Recovered/Not Resolved]
  - Headache [Not Recovered/Not Resolved]
  - Incontinence [Not Recovered/Not Resolved]
  - Tachycardia [Recovered/Resolved with Sequelae]
  - Dizziness [Not Recovered/Not Resolved]
  - Malaise [Not Recovered/Not Resolved]
  - Depressed mood [Not Recovered/Not Resolved]
  - Vomiting [Unknown]
  - Sepsis [Recovered/Resolved with Sequelae]
  - Lower respiratory tract infection [Recovered/Resolved with Sequelae]
  - Nausea [Recovered/Resolved]
  - Dyspepsia [Not Recovered/Not Resolved]
  - Rash [Not Recovered/Not Resolved]
  - Supraventricular tachycardia [Recovered/Resolved with Sequelae]
  - Nausea [Not Recovered/Not Resolved]
  - Dry mouth [Not Recovered/Not Resolved]
  - Confusional state [Not Recovered/Not Resolved]

NARRATIVE: CASE EVENT DATE: 20150410
